FAERS Safety Report 8099530-3 (Version None)
Quarter: 2012Q1

REPORT INFORMATION
  Report Type: 
  Country: None (occurrence: None)
  Receive Date: 20120129
  Receipt Date: 20110923
  Transmission Date: 20120608
  Serious: No
  Sender: FDA-Public Use
  Company Number: US-ABBOTT-11P-163-0858148-00

PATIENT
  Sex: Female
  Weight: 68.554 kg

DRUGS (5)
  1. PRAVASTATIN [Concomitant]
     Indication: BLOOD CHOLESTEROL
  2. TOPROL-XL [Concomitant]
     Indication: HYPERTENSION
  3. HUMIRA [Suspect]
     Indication: ANKYLOSING SPONDYLITIS
     Dates: start: 20110701
  4. BENAZEPRIL HYDROCHLORIDE [Concomitant]
     Indication: HYPERTENSION
  5. CARBIDOPA AND LEVODOPA [Concomitant]
     Indication: PARKINSON'S DISEASE

REACTIONS (1)
  - ALOPECIA [None]
